FAERS Safety Report 12000762 (Version 1)
Quarter: 2016Q1

REPORT INFORMATION
  Report Type: Spontaneous
  Country: US (occurrence: US)
  Receive Date: 20160204
  Receipt Date: 20160204
  Transmission Date: 20160526
  Serious: No
  Sender: FDA-Public Use
  Company Number: US-PFIZER INC-2016057528

PATIENT
  Age: 63 Year
  Sex: Female
  Weight: 110.2 kg

DRUGS (1)
  1. IBRANCE [Suspect]
     Active Substance: PALBOCICLIB
     Indication: BREAST CANCER
     Dosage: 125 MG, CYCLIC (DAYS 1-21 Q 28 DAYS )
     Route: 048
     Dates: start: 20160115

REACTIONS (3)
  - Dehydration [Unknown]
  - White blood cell count decreased [Unknown]
  - Oral pain [Unknown]
